FAERS Safety Report 14890800 (Version 1)
Quarter: 2018Q2

REPORT INFORMATION
  Report Type: Spontaneous
  Country: US (occurrence: US)
  Receive Date: 20180514
  Receipt Date: 20180514
  Transmission Date: 20180711
  Serious: No
  Sender: FDA-Public Use
  Company Number: US-UNITED THERAPEUTICS-UNT-2018-002271

PATIENT
  Age: 25 Year
  Sex: Male
  Weight: 68.27 kg

DRUGS (2)
  1. ADCIRCA [Concomitant]
     Active Substance: TADALAFIL
     Indication: PRODUCT USED FOR UNKNOWN INDICATION
     Route: 065
  2. REMODULIN [Suspect]
     Active Substance: TREPROSTINIL
     Indication: PULMONARY ARTERIAL HYPERTENSION
     Dosage: 0.15 ?G/KG, CONTINUING
     Route: 058
     Dates: start: 20170417

REACTIONS (5)
  - Abdominal pain upper [Recovering/Resolving]
  - Device breakage [Unknown]
  - Abdominal discomfort [Recovering/Resolving]
  - Cold sweat [Recovering/Resolving]
  - Somnolence [Recovering/Resolving]

NARRATIVE: CASE EVENT DATE: 20180215
